FAERS Safety Report 25105004 (Version 3)
Quarter: 2025Q4

REPORT INFORMATION
  Report Type: Spontaneous
  Country: EU (occurrence: EU)
  Receive Date: 20250321
  Receipt Date: 20251106
  Transmission Date: 20260118
  Serious: Yes (Other)
  Sender: NOVARTIS
  Company Number: EU-002147023-NVSC2025LU047400

PATIENT
  Sex: Female

DRUGS (3)
  1. KESIMPTA [Suspect]
     Active Substance: OFATUMUMAB
     Indication: Multiple sclerosis
     Dosage: 20 MG, QMO
     Route: 065
     Dates: start: 20231026, end: 20241026
  2. KESIMPTA [Suspect]
     Active Substance: OFATUMUMAB
     Dosage: 20 MG, QMO
     Route: 065
     Dates: start: 20241219
  3. KESIMPTA [Suspect]
     Active Substance: OFATUMUMAB
     Dosage: 20 MG (EVERY 6 WEEKS)
     Route: 065
     Dates: start: 20250401

REACTIONS (18)
  - Respiratory tract infection [Unknown]
  - Bronchopneumopathy [Unknown]
  - Bronchitis [Unknown]
  - Pyrexia [Unknown]
  - Myalgia [Unknown]
  - Headache [Unknown]
  - Cough [Unknown]
  - Dyspnoea [Unknown]
  - Breath sounds [Unknown]
  - White blood cell count increased [Unknown]
  - Ear infection [Unknown]
  - Mycoplasma infection [Unknown]
  - Ear discomfort [Unknown]
  - Increased viscosity of upper respiratory secretion [Unknown]
  - Pruritus [Unknown]
  - Vaginal discharge [Unknown]
  - Drug intolerance [Unknown]
  - Cystitis escherichia [Unknown]

NARRATIVE: CASE EVENT DATE: 20240812
